FAERS Safety Report 8451909-3 (Version None)
Quarter: 2012Q2

REPORT INFORMATION
  Report Type: 
  Country: None (occurrence: None)
  Receive Date: 20120620
  Receipt Date: 20120516
  Transmission Date: 20120825
  Serious: No
  Sender: FDA-Public Use
  Company Number: US-VERTEX PHARMACEUTICALS INC.-AE-2012-004282

PATIENT
  Sex: Male
  Weight: 95.34 kg

DRUGS (12)
  1. PEGASYS [Concomitant]
     Indication: HEPATITIS C
     Route: 058
     Dates: start: 20120313, end: 20120501
  2. LEXAPRO [Concomitant]
     Indication: DEPRESSION
     Route: 048
  3. NAPROXEN [Concomitant]
     Indication: MUSCULOSKELETAL STIFFNESS
  4. TRAMADOL HCL [Concomitant]
     Indication: PAIN
     Route: 048
  5. PROAIR HFA [Concomitant]
     Indication: CHRONIC OBSTRUCTIVE PULMONARY DISEASE
  6. AMLODIPINE [Concomitant]
     Indication: HYPERTENSION
     Route: 048
  7. LISINOPRIL AND HYDROCHLOROTHIAZIDE [Concomitant]
     Indication: HYPERTENSION
     Route: 048
  8. INCIVEK [Suspect]
     Indication: HEPATITIS C
     Route: 048
     Dates: start: 20120313
  9. NAPROXEN [Concomitant]
     Indication: ARTHRALGIA
     Route: 048
  10. PEGASYS [Concomitant]
     Route: 058
     Dates: start: 20120501
  11. PRILOSEC [Concomitant]
     Indication: GASTROOESOPHAGEAL REFLUX DISEASE
     Route: 048
  12. RIBAVIRIN [Concomitant]
     Indication: HEPATITIS C
     Route: 048
     Dates: start: 20120313

REACTIONS (10)
  - RASH ERYTHEMATOUS [None]
  - NAUSEA [None]
  - FATIGUE [None]
  - PLATELET COUNT DECREASED [None]
  - RETCHING [None]
  - DRUG DOSE OMISSION [None]
  - CONSTIPATION [None]
  - ANORECTAL DISCOMFORT [None]
  - COUGH [None]
  - ABDOMINAL DISCOMFORT [None]
